FAERS Safety Report 7671426-8 (Version None)
Quarter: 2011Q3

REPORT INFORMATION
  Report Type: 
  Country: None (occurrence: None)
  Receive Date: 20110809
  Receipt Date: 20110322
  Transmission Date: 20111222
  Serious: Yes (Hospitalization)
  Sender: FDA-Public Use
  Company Number: GB-AMGEN-KDC410683

PATIENT
  Age: 66 Year
  Sex: Female
  Weight: 59 kg

DRUGS (2)
  1. IRINOTECAN HCL [Concomitant]
     Dosage: 556 MG, UNK
     Route: 042
     Dates: start: 20100422
  2. PANITUMUMAB [Suspect]
     Indication: COLORECTAL CANCER
     Dosage: 522 MG, UNK
     Route: 042
     Dates: start: 20100422

REACTIONS (1)
  - NEUTROPENIC SEPSIS [None]
